FAERS Safety Report 9919473 (Version 2)
Quarter: 2014Q1

REPORT INFORMATION
  Report Type: Spontaneous
  Country: US (occurrence: US)
  Receive Date: 20140224
  Receipt Date: 20140313
  Transmission Date: 20141002
  Serious: No
  Sender: FDA-Public Use
  Company Number: US-009507513-1402USA008999

PATIENT
  Sex: Male

DRUGS (3)
  1. PROVENTIL [Suspect]
     Dosage: UNK, PRN
     Route: 055
  2. PROVENTIL [Suspect]
     Dosage: UNK, PRN
     Route: 055
  3. PROVENTIL [Suspect]
     Dosage: UNK, PRN
     Route: 055

REACTIONS (3)
  - Incorrect dose administered [Unknown]
  - Product quality issue [Unknown]
  - No adverse event [Unknown]
